FAERS Safety Report 9421904 (Version 1)
Quarter: 2013Q3

REPORT INFORMATION
  Report Type: Spontaneous
  Country: US (occurrence: US)
  Receive Date: 20130726
  Receipt Date: 20130726
  Transmission Date: 20140515
  Serious: Yes (Other)
  Sender: FDA-Public Use
  Company Number: US-PFIZER INC-2013216792

PATIENT
  Age: 73 Year
  Sex: Female
  Weight: 79.4 kg

DRUGS (9)
  1. ADVIL [Suspect]
     Indication: ARTHRALGIA
     Dosage: OVER SIX CAPSULES PER DAY
     Route: 048
     Dates: start: 2012
  2. PERCOCET [Suspect]
     Indication: ARTHRALGIA
     Dosage: UNK
  3. HYDROCODONE [Suspect]
     Indication: ARTHRALGIA
     Dosage: UNK
  4. ALEVE [Suspect]
     Indication: ARTHRALGIA
     Dosage: UNK
  5. NORVASC [Concomitant]
     Indication: HYPERTENSION
     Dosage: 10 MG, 1X/DAY
  6. TOPROL XL [Concomitant]
     Indication: HYPERTENSION
     Dosage: 50 MG, 1X/DAY
  7. LISINOPRIL [Concomitant]
     Indication: HYPERTENSION
     Dosage: 20 MG, 1X/DAY
  8. ATORVASTATIN [Concomitant]
     Indication: BLOOD CHOLESTEROL ABNORMAL
     Dosage: 20 MG, 1X/DAY
  9. CYMBALTA [Concomitant]
     Indication: DEPRESSION
     Dosage: 60 MG, 1X/DAY

REACTIONS (11)
  - Extra dose administered [Unknown]
  - Gastric haemorrhage [Unknown]
  - Gait disturbance [Unknown]
  - Malaise [Unknown]
  - Feeling abnormal [Unknown]
  - Emotional disorder [Unknown]
  - Confusional state [Unknown]
  - Nausea [Unknown]
  - Thinking abnormal [Unknown]
  - Drug ineffective [Unknown]
  - Condition aggravated [Unknown]
